FAERS Safety Report 7019971-2 (Version None)
Quarter: 2010Q3

REPORT INFORMATION
  Report Type: 
  Country: None (occurrence: None)
  Receive Date: 20100929
  Receipt Date: 20100921
  Transmission Date: 20110219
  Serious: Yes (Other)
  Sender: FDA-Public Use
  Company Number: JP-JNJFOC-20100908198

PATIENT

DRUGS (3)
  1. ITRIZOLE [Suspect]
     Indication: ONYCHOMYCOSIS
     Route: 048
  2. NIFEDIPINE [Concomitant]
     Route: 065
  3. DOXAZOSIN MESYLATE [Concomitant]
     Route: 065

REACTIONS (2)
  - OEDEMA [None]
  - WEIGHT INCREASED [None]
